FAERS Safety Report 18268929 (Version 1)
Quarter: 2020Q3

REPORT INFORMATION
  Report Type: Spontaneous
  Country: CN (occurrence: CN)
  Receive Date: 20200915
  Receipt Date: 20200915
  Transmission Date: 20201103
  Serious: Yes (Other)
  Sender: FDA-Public Use
  Company Number: CN-INSUD PHARMA-2008CN00207

PATIENT

DRUGS (1)
  1. LEVONORGESTREL. [Suspect]
     Active Substance: LEVONORGESTREL
     Indication: ENDOMETRIAL HYPERPLASIA
     Dosage: 52?MG LEVONORGESTREL?RELEASING INTRAUTERINE SYSTEM
     Route: 015

REACTIONS (5)
  - Endometrial adenocarcinoma [Recovered/Resolved]
  - Uterine mass [Recovered/Resolved]
  - Pelvic mass [Recovered/Resolved]
  - Uterine polyp [Recovered/Resolved]
  - Vaginal haemorrhage [Recovered/Resolved]
